FAERS Safety Report 14634180 (Version 1)
Quarter: 2018Q1

REPORT INFORMATION
  Report Type: Spontaneous
  Country: US (occurrence: US)
  Receive Date: 20180314
  Receipt Date: 20180314
  Transmission Date: 20180509
  Serious: Yes (Death)
  Sender: FDA-Public Use
  Company Number: US-ASTRAZENECA-2018SE31276

PATIENT
  Age: 85 Year
  Sex: Female

DRUGS (3)
  1. PREVACID [Suspect]
     Active Substance: LANSOPRAZOLE
     Dosage: SHE TOOK PREVACID AND PRILOSEC OTC AT ONE TIME.
     Route: 065
  2. PRILOSEC OTC [Suspect]
     Active Substance: OMEPRAZOLE MAGNESIUM
     Dosage: TOOK OFF AND ON FOR 2-3 YEARS AT LEAST, NOT EVERY SINGLE DAY
     Route: 048
  3. TYLENOL [Suspect]
     Active Substance: ACETAMINOPHEN
     Dosage: OCCASIONAL
     Route: 065

REACTIONS (4)
  - Renal impairment [Fatal]
  - Myocardial infarction [Fatal]
  - Cardiac failure [Fatal]
  - Shock [Fatal]
